FAERS Safety Report 9152426 (Version 1)
Quarter: 2013Q1

REPORT INFORMATION
  Report Type: Spontaneous
  Country: BE (occurrence: BE)
  Receive Date: 20130308
  Receipt Date: 20130308
  Transmission Date: 20140127
  Serious: Yes (Other)
  Sender: FDA-Public Use
  Company Number: BE-B.I. PHARMACEUTICALS,INC./RIDGEFIELD-2013-BI-05841GD

PATIENT
  Age: 69 Year
  Sex: Male

DRUGS (4)
  1. DIPYRIDAMOLE [Suspect]
     Indication: CEREBROVASCULAR ACCIDENT PROPHYLAXIS
  2. ASPIRIN [Suspect]
     Indication: CEREBROVASCULAR ACCIDENT PROPHYLAXIS
  3. ATORVASTATIN CALCIUM [Concomitant]
     Indication: CEREBROVASCULAR ACCIDENT PROPHYLAXIS
  4. ANTIHYPERTENSIVES [Concomitant]
     Indication: CEREBROVASCULAR ACCIDENT PROPHYLAXIS

REACTIONS (1)
  - Drug ineffective [Unknown]
